FAERS Safety Report 8985873 (Version 1)
Quarter: 2012Q4

REPORT INFORMATION
  Report Type: 
  Country: US (occurrence: US)
  Receive Date: 20121226
  Receipt Date: 20121226
  Transmission Date: 20130627
  Serious: Yes (Other)
  Sender: FDA-Public Use
  Company Number: US-PFIZER INC-2012324538

PATIENT
  Age: 60 Year
  Sex: Female
  Weight: 107.94 kg

DRUGS (8)
  1. PRISTIQ [Suspect]
     Indication: DEPRESSION
     Dosage: 50 mg, 1x/day
     Route: 048
  2. METOPROLOL [Concomitant]
     Indication: BLOOD PRESSURE HIGH
     Dosage: 25 mg, 2x/day
  3. GABAPENTIN [Concomitant]
     Indication: NEUROPATHY
     Dosage: 600 mg, 1x/day
  4. SYNTHROID [Concomitant]
     Indication: UNSPECIFIED DISORDER OF THYROID
     Dosage: UNK
  5. DURAGESIC [Concomitant]
     Dosage: 50 ug, UNK
  6. XANAX [Concomitant]
     Dosage: 0.5 mg, 2x/day
  7. SIMVASTATIN [Concomitant]
     Dosage: 40 mg, 1x/day
  8. AMLODIPINE [Concomitant]
     Dosage: 5 mg, 2x/day

REACTIONS (6)
  - Aortic aneurysm [Not Recovered/Not Resolved]
  - Depression [Not Recovered/Not Resolved]
  - Feeling abnormal [Not Recovered/Not Resolved]
  - Condition aggravated [Not Recovered/Not Resolved]
  - Disturbance in attention [Not Recovered/Not Resolved]
  - Therapeutic response unexpected [Unknown]
